FAERS Safety Report 20801184 (Version 3)
Quarter: 2022Q2

REPORT INFORMATION
  Report Type: Spontaneous
  Country: CN (occurrence: CN)
  Receive Date: 20220509
  Receipt Date: 20220610
  Transmission Date: 20220721
  Serious: Yes (Death, Life-Threatening, Hospitalization, Other)
  Sender: FDA-Public Use
  Company Number: CN-AMGEN-CHNSP2022074973

PATIENT
  Age: 57 Year
  Sex: Female

DRUGS (18)
  1. PROLIA [Suspect]
     Active Substance: DENOSUMAB
     Indication: Osteoporosis
     Dosage: 60 MILLIGRAM
     Route: 058
     Dates: start: 20201112
  2. VITAMIN D3 [Concomitant]
     Active Substance: CHOLECALCIFEROL
     Dosage: 2000 INTERNATIONAL UNIT
  3. ROCALTROL [Concomitant]
     Active Substance: CALCITRIOL
     Dosage: 0.25 MICROGRAM, QD
  4. OMEPRAZOLE [Concomitant]
     Active Substance: OMEPRAZOLE
  5. MIDODRINE HYDROCHLORIDE [Concomitant]
     Active Substance: MIDODRINE HYDROCHLORIDE
     Dosage: 2.5 MILLIGRAM, TID
     Route: 048
  6. AMINO ACIDS, SOURCE UNSPECIFIED [Concomitant]
     Active Substance: AMINO ACIDS, SOURCE UNSPECIFIED
     Indication: Nutritional supplementation
  7. PIPERACILLIN SODIUM\TAZOBACTAM SODIUM [Concomitant]
     Active Substance: PIPERACILLIN SODIUM\TAZOBACTAM SODIUM
     Indication: Infection
  8. FLUIMUCIL [Concomitant]
     Active Substance: ACETYLCYSTEINE
     Indication: Productive cough
     Dosage: UNK
     Dates: start: 2021
  9. NOREPINEPHRINE [Concomitant]
     Active Substance: NOREPINEPHRINE
     Indication: Blood pressure abnormal
     Dosage: UNK
     Dates: start: 2021
  10. EPINEPHRINE [Concomitant]
     Active Substance: EPINEPHRINE
     Route: 042
  11. NIKETHAMIDE [Concomitant]
     Active Substance: NIKETHAMIDE
     Route: 042
  12. LOBELINE [Concomitant]
     Active Substance: LOBELINE
     Route: 042
  13. SODIUM BICARBONATE [Concomitant]
     Active Substance: SODIUM BICARBONATE
     Indication: Acid base balance
     Route: 042
  14. TIGECYCLINE [Concomitant]
     Active Substance: TIGECYCLINE
  15. AMBROXOL [Concomitant]
     Active Substance: AMBROXOL
  16. VITAMIN K1 [Concomitant]
     Active Substance: PHYTONADIONE
     Indication: Vitamin K
  17. NEXIUM [Concomitant]
     Active Substance: ESOMEPRAZOLE MAGNESIUM
     Indication: Prophylaxis
  18. SOMATOSTATIN [Concomitant]
     Active Substance: SOMATOSTATIN
     Indication: Haemorrhage

REACTIONS (39)
  - Cardio-respiratory arrest [Fatal]
  - Device related sepsis [Fatal]
  - Thrombocytopenia [Unknown]
  - Hypoxic-ischaemic encephalopathy [Unknown]
  - Hepatic failure [Unknown]
  - End stage renal disease [Unknown]
  - Nephrogenic anaemia [Unknown]
  - Respiratory failure [Unknown]
  - Septic shock [Unknown]
  - Secondary hyperthyroidism [Unknown]
  - Calciphylaxis [Recovered/Resolved]
  - Renal failure [Unknown]
  - Pneumonia [Unknown]
  - Dialysis hypotension [Unknown]
  - Gastrointestinal disorder [Unknown]
  - Acid base balance abnormal [Unknown]
  - Bone disorder [Unknown]
  - Coagulation test abnormal [Unknown]
  - Pleural effusion [Unknown]
  - Haemorrhoidal haemorrhage [Unknown]
  - Dysbiosis [Unknown]
  - Hypoproteinaemia [Unknown]
  - Humerus fracture [Unknown]
  - Intervertebral disc protrusion [Unknown]
  - Joint dislocation [Unknown]
  - Resuscitation [Unknown]
  - Upper limb fracture [Unknown]
  - Adverse reaction [Unknown]
  - Parathyroidectomy [Unknown]
  - Nutritional condition abnormal [Unknown]
  - Hypercalcaemia [Unknown]
  - Bone deformity [Unknown]
  - Wheelchair user [Unknown]
  - Hyperparathyroidism tertiary [Unknown]
  - Angiopathy [Unknown]
  - Hypotension [Unknown]
  - Gastrooesophageal reflux disease [Unknown]
  - Fall [Unknown]
  - Bone pain [Recovering/Resolving]
